FAERS Safety Report 7328837-X (Version None)
Quarter: 2011Q1

REPORT INFORMATION
  Report Type: 
  Country: None (occurrence: None)
  Receive Date: 20110303
  Receipt Date: 20110218
  Transmission Date: 20110831
  Serious: Yes (Other)
  Sender: FDA-Public Use
  Company Number: PHHY2011FR13677

PATIENT
  Age: 44 Year
  Sex: Female

DRUGS (2)
  1. TASIGNA [Suspect]
     Indication: DRUG RESISTANCE
     Dosage: DAILY
  2. ORAL CONTRACEPTIVE NOS [Concomitant]

REACTIONS (7)
  - COLLATERAL CIRCULATION [None]
  - COELIAC ARTERY STENOSIS [None]
  - INTERMITTENT CLAUDICATION [None]
  - RENAL ARTERY STENOSIS [None]
  - FEMORAL ARTERIAL STENOSIS [None]
  - HYPERCHOLESTEROLAEMIA [None]
  - FEMORAL ARTERY OCCLUSION [None]
